FAERS Safety Report 25323455 (Version 2)
Quarter: 2025Q2

REPORT INFORMATION
  Report Type: Spontaneous
  Country: FR (occurrence: FR)
  Receive Date: 20250516
  Receipt Date: 20250520
  Transmission Date: 20250716
  Serious: Yes (Death)
  Sender: MYLAN
  Company Number: FR-MYLANLABS-2025M1041584

PATIENT

DRUGS (8)
  1. VENLAFAXINE [Suspect]
     Active Substance: VENLAFAXINE HYDROCHLORIDE
     Indication: Product used for unknown indication
  2. VENLAFAXINE [Suspect]
     Active Substance: VENLAFAXINE HYDROCHLORIDE
     Route: 065
  3. VENLAFAXINE [Suspect]
     Active Substance: VENLAFAXINE HYDROCHLORIDE
     Route: 065
  4. VENLAFAXINE [Suspect]
     Active Substance: VENLAFAXINE HYDROCHLORIDE
  5. TUAMINOHEPTANE SULFATE [Suspect]
     Active Substance: TUAMINOHEPTANE SULFATE
     Indication: Product used for unknown indication
  6. TUAMINOHEPTANE SULFATE [Suspect]
     Active Substance: TUAMINOHEPTANE SULFATE
     Route: 065
  7. TUAMINOHEPTANE SULFATE [Suspect]
     Active Substance: TUAMINOHEPTANE SULFATE
     Route: 065
  8. TUAMINOHEPTANE SULFATE [Suspect]
     Active Substance: TUAMINOHEPTANE SULFATE

REACTIONS (1)
  - Reversible cerebral vasoconstriction syndrome [Fatal]
